FAERS Safety Report 17397141 (Version 1)
Quarter: 2020Q1

REPORT INFORMATION
  Report Type: Spontaneous
  Country: US (occurrence: US)
  Receive Date: 20200207
  Receipt Date: 20200207
  Transmission Date: 20200409
  Serious: Yes (Other)
  Sender: FDA-Public Use
  Company Number: None

PATIENT
  Age: 48 Year
  Sex: Female
  Weight: 65.25 kg

DRUGS (3)
  1. AIMOVIG [Suspect]
     Active Substance: ERENUMAB-AOOE
     Indication: MIGRAINE PROPHYLAXIS
     Dosage: ?          OTHER ROUTE:INJECTION INTO THE SKIN 140 MG?
     Dates: start: 20200129
  2. MULTI-VITAMINS [Concomitant]
  3. ZYRTEC [Concomitant]
     Active Substance: CETIRIZINE HYDROCHLORIDE

REACTIONS (5)
  - Muscular weakness [None]
  - Dizziness [None]
  - Migraine [None]
  - Malaise [None]
  - Paraesthesia [None]

NARRATIVE: CASE EVENT DATE: 20200129
